FAERS Safety Report 7971354-4 (Version None)
Quarter: 2011Q4

REPORT INFORMATION
  Report Type: 
  Country: None (occurrence: None)
  Receive Date: 20111212
  Receipt Date: 20111207
  Transmission Date: 20120403
  Serious: Yes (Hospitalization)
  Sender: FDA-Public Use
  Company Number: PHHY2011AU107254

PATIENT
  Sex: Male

DRUGS (2)
  1. STALEVO 100 [Suspect]
     Dosage: UNK UKN, UNK
     Route: 048
  2. STALEVO 100 [Suspect]
     Dosage: (125/31.25/200) DOSE AT 8 AM, NOON AND 5 PM
     Route: 048

REACTIONS (1)
  - FALL [None]
